FAERS Safety Report 22195974 (Version 2)
Quarter: 2023Q2

REPORT INFORMATION
  Report Type: Spontaneous
  Country: RO (occurrence: RO)
  Receive Date: 20230411
  Receipt Date: 20230413
  Transmission Date: 20230721
  Serious: Yes (Other)
  Sender: FDA-Public Use
  Company Number: RO-AMGEN-ROUSP2023058433

PATIENT
  Age: 46 Year
  Sex: Male

DRUGS (5)
  1. VECTIBIX [Suspect]
     Active Substance: PANITUMUMAB
     Indication: Colorectal cancer metastatic
     Dosage: 6 MILLIGRAM/KILOGRAM, 8 CYCLES
     Route: 042
     Dates: start: 20190605
  2. VECTIBIX [Suspect]
     Active Substance: PANITUMUMAB
     Dosage: UNK
     Route: 042
     Dates: start: 202201
  3. LEUCOVORIN [Suspect]
     Active Substance: LEUCOVORIN
     Indication: Colorectal cancer metastatic
     Dosage: UNK UNK, Q2WK, 8 CYCLES
     Route: 042
     Dates: start: 20190605
  4. FLUOROURACIL [Suspect]
     Active Substance: FLUOROURACIL
     Indication: Colorectal cancer metastatic
     Dosage: UNK UNK, Q2WK, 8 CYCLES
     Route: 042
     Dates: start: 20190605
  5. IRINOTECAN [Suspect]
     Active Substance: IRINOTECAN
     Indication: Colorectal cancer metastatic
     Dosage: UNK UNK, Q2WK, 8 CYCLES
     Route: 042
     Dates: start: 20190605

REACTIONS (6)
  - Neutropenia [Recovered/Resolved]
  - Haemorrhoids [Recovered/Resolved]
  - Toxicity to various agents [Recovered/Resolved]
  - Inflammation [Recovered/Resolved]
  - Normochromic normocytic anaemia [Recovered/Resolved]
  - Dermatitis acneiform [Recovered/Resolved]
